FAERS Safety Report 15103897 (Version 2)
Quarter: 2018Q4

REPORT INFORMATION
  Report Type: Spontaneous
  Country: JP (occurrence: JP)
  Receive Date: 20180703
  Receipt Date: 20181108
  Transmission Date: 20190204
  Serious: Yes (Other)
  Sender: FDA-Public Use
  Company Number: JP-SUCAMPO PHARMACEUTICALS INC.-SPI201800672

PATIENT
  Age: 84 Year
  Sex: Female

DRUGS (7)
  1. AMITIZA [Suspect]
     Active Substance: LUBIPROSTONE
     Dosage: UNK
     Dates: start: 20180603, end: 20180607
  2. MEMARY [Concomitant]
     Active Substance: MEMANTINE HYDROCHLORIDE
  3. QUETIAPINE. [Concomitant]
     Active Substance: QUETIAPINE
  4. BONOTEO [Concomitant]
     Active Substance: MINODRONIC ACID
  5. FERROUS SULFATE. [Concomitant]
     Active Substance: FERROUS SULFATE
  6. BIO-THREE [Concomitant]
     Active Substance: HERBALS
  7. REBAMIPIDE [Concomitant]
     Active Substance: REBAMIPIDE

REACTIONS (5)
  - Gastrointestinal oedema [Unknown]
  - Decreased appetite [Recovering/Resolving]
  - Gastrointestinal hypomotility [Unknown]
  - Diarrhoea [Not Recovered/Not Resolved]
  - Blood albumin decreased [Unknown]

NARRATIVE: CASE EVENT DATE: 20180605
